FAERS Safety Report 7939573-0 (Version None)
Quarter: 2011Q4

REPORT INFORMATION
  Report Type: 
  Country: None (occurrence: None)
  Receive Date: 20111125
  Receipt Date: 20111117
  Transmission Date: 20120403
  Serious: Yes (Death, Hospitalization, Other)
  Sender: FDA-Public Use
  Company Number: FR-PFIZER INC-2011278865

PATIENT
  Age: 83 Year
  Sex: Female

DRUGS (9)
  1. RABEPRAZOLE SODIUM [Concomitant]
  2. PREVISCAN [Concomitant]
     Dosage: UNK
     Dates: end: 20111027
  3. LEXOMIL [Concomitant]
  4. CORDARONE [Concomitant]
  5. BISOPROLOL FUMARATE [Concomitant]
  6. ACETAMINOPHEN [Concomitant]
  7. ZYVOX [Suspect]
     Indication: STAPHYLOCOCCAL MEDIASTINITIS
     Dosage: 600 MG, 2X/DAY
     Dates: start: 20111002, end: 20111026
  8. ORGARAN [Concomitant]
     Dosage: UNK
     Dates: end: 20111027
  9. CRESTOR [Concomitant]

REACTIONS (4)
  - LACTIC ACIDOSIS [None]
  - RENAL FAILURE [None]
  - THROMBOCYTOPENIA [None]
  - REFRACTORY ANAEMIA [None]
